FAERS Safety Report 19670502 (Version 2)
Quarter: 2021Q3

REPORT INFORMATION
  Report Type: Spontaneous
  Country: US (occurrence: US)
  Receive Date: 20210806
  Receipt Date: 20210930
  Transmission Date: 20211014
  Serious: Yes (Other)
  Sender: FDA-Public Use
  Company Number: US-TEVA-2021-US-1939194

PATIENT
  Sex: Male

DRUGS (2)
  1. VALSARTAN/HCTZ ACETRIS [Suspect]
     Active Substance: HYDROCHLOROTHIAZIDE\VALSARTAN
     Dosage: 160?25 MG
     Route: 065
     Dates: start: 20150127, end: 20171121
  2. VALSARTAN AND HYDROCHLOROTHIAZIDE [Suspect]
     Active Substance: HYDROCHLOROTHIAZIDE\VALSARTAN
     Dosage: 160?25 MG
     Route: 065
     Dates: start: 20121017, end: 20141228

REACTIONS (1)
  - Colorectal cancer [Unknown]
